FAERS Safety Report 19647139 (Version 4)
Quarter: 2021Q3

REPORT INFORMATION
  Report Type: Spontaneous
  Country: AR (occurrence: AR)
  Receive Date: 20210802
  Receipt Date: 20210917
  Transmission Date: 20211014
  Serious: Yes (Life-Threatening, Hospitalization, Other)
  Sender: FDA-Public Use
  Company Number: AR-EMD SERONO-9253924

PATIENT
  Age: 27 Year
  Sex: Male

DRUGS (4)
  1. MAVENCLAD [Suspect]
     Active Substance: CLADRIBINE
     Indication: MULTIPLE SCLEROSIS
     Dosage: YEAR ONE MONTH ONE THERAPY
     Route: 048
     Dates: start: 20190624, end: 20190628
  2. MAVENCLAD [Suspect]
     Active Substance: CLADRIBINE
     Dosage: YEAR ONE MONTH TWO THERAPY
     Route: 048
     Dates: start: 20190722, end: 20190726
  3. MAVENCLAD [Suspect]
     Active Substance: CLADRIBINE
     Dosage: YEAR TWO MONTH ONE THERAPY
     Route: 048
     Dates: start: 20200629, end: 20200703
  4. MAVENCLAD [Suspect]
     Active Substance: CLADRIBINE
     Dosage: YEAR TWO MONTH TWO THERAPY
     Route: 048
     Dates: start: 20200727, end: 20200731

REACTIONS (10)
  - Septic shock [Unknown]
  - Weight decreased [Not Recovered/Not Resolved]
  - Tongue fungal infection [Not Recovered/Not Resolved]
  - Lymphocyte count decreased [Not Recovered/Not Resolved]
  - Magnetic resonance imaging abnormal [Unknown]
  - Urinary retention [Not Recovered/Not Resolved]
  - Hypophagia [Not Recovered/Not Resolved]
  - Histoplasmosis disseminated [Unknown]
  - Ventriculo-peritoneal shunt [Unknown]
  - Muscular weakness [Not Recovered/Not Resolved]

NARRATIVE: CASE EVENT DATE: 2020
